FAERS Safety Report 5449110-0 (Version None)
Quarter: 2007Q3

REPORT INFORMATION
  Report Type: 
  Country: None (occurrence: None)
  Receive Date: 20070911
  Receipt Date: 20070907
  Transmission Date: 20080115
  Serious: Yes (Hospitalization)
  Sender: FDA-Public Use
  Company Number: FR-ELI_LILLY_AND_COMPANY-FR200708005905

PATIENT
  Age: 73 Year
  Sex: Female

DRUGS (6)
  1. FORTEO [Suspect]
     Indication: OSTEOPOROSIS
     Dosage: 20 UG, DAILY (1/D)
     Route: 058
     Dates: start: 20070117
  2. ACARBOSE [Concomitant]
     Indication: TYPE 2 DIABETES MELLITUS
  3. NOVONORM [Concomitant]
     Indication: TYPE 2 DIABETES MELLITUS
     Dosage: UNK, 3/D
  4. GLUCOVANCE [Concomitant]
  5. SECTRAL [Concomitant]
  6. PREVISCAN [Concomitant]

REACTIONS (1)
  - AORTIC ANEURYSM [None]
